FAERS Safety Report 10908049 (Version 4)
Quarter: 2016Q4

REPORT INFORMATION
  Report Type: Spontaneous
  Country: US (occurrence: US)
  Receive Date: 20150312
  Receipt Date: 20161205
  Transmission Date: 20170206
  Serious: No
  Sender: FDA-Public Use
  Company Number: US-PFIZER INC-2015029957

PATIENT
  Age: 54 Year
  Sex: Male

DRUGS (17)
  1. ZOLPIDEM TARTRATE. [Concomitant]
     Active Substance: ZOLPIDEM TARTRATE
     Indication: MAJOR DEPRESSION
     Dosage: 10 MG, 1X/DAY (1 EVERY NIGHT AT BEDTIME MDD 1)
     Route: 048
  2. GLUCOSAMINE + CHONDROITIN [Concomitant]
     Dosage: 1 DF, DAILY [CHONDROITIN SULFATE-1500]/[GLUCOSAMINE SULFATE-1200]
     Route: 048
  3. SAW PALMETTO [Concomitant]
     Active Substance: SAW PALMETTO
     Dosage: UNK
  4. RELPAX [Suspect]
     Active Substance: ELETRIPTAN HYDROBROMIDE
     Indication: MIGRAINE
     Dosage: 40 MG, QD PRN (AS DIRECTED REPEAT IN 24 HOURS)
     Route: 048
  5. LORAZEPAM. [Concomitant]
     Active Substance: LORAZEPAM
     Indication: MAJOR DEPRESSION
     Dosage: 1 MG, 3X/DAY (1 THREE X A DAY)
     Route: 048
  6. FLUTICASONE PROPIONATE. [Concomitant]
     Active Substance: FLUTICASONE PROPIONATE
     Dosage: 2 DF, DAILY (50 MCG/ACT, 2 SPRAYS EVERY NOSTRIL)
     Route: 045
  7. ZOLPIDEM [Concomitant]
     Active Substance: ZOLPIDEM\ZOLPIDEM TARTRATE
     Indication: SLEEP DISORDER
     Dosage: 10 MG, HS PRN
     Route: 048
     Dates: start: 20150130
  8. WELLBUTRIN XL [Concomitant]
     Active Substance: BUPROPION HYDROCHLORIDE
     Dosage: 150 MG, DAILY (1 TABLET EVERY DAY)
     Route: 048
  9. LANSOPRAZOLE. [Concomitant]
     Active Substance: LANSOPRAZOLE
     Dosage: 30 MG, DAILY (1 EVERY DAY)
     Route: 048
  10. TOPAMAX [Concomitant]
     Active Substance: TOPIRAMATE
     Dosage: 50 MG, 1X/DAY (1 EVERY NIGHT AT BEDTIME)
     Route: 048
  11. BABY ASPIRIN [Concomitant]
     Active Substance: ASPIRIN
     Dosage: 81 MG, DAILY (1)
     Route: 048
  12. LORAZEPAM. [Concomitant]
     Active Substance: LORAZEPAM
     Indication: ANXIETY
     Dosage: 1 MG, 2X/DAY,PRN
     Route: 048
     Dates: start: 20140723
  13. WELLBUTRIN [Concomitant]
     Active Substance: BUPROPION HYDROCHLORIDE
     Indication: DEPRESSION
     Dosage: 150 MG, QD
     Route: 048
     Dates: start: 20100729
  14. ANUSOL-HC [Concomitant]
     Dosage: UNK UNK, 2X/DAY (APPLY TO AFFECTED AREA PERINEUM TWICE A DAY AS DIRECTED)
  15. LUTEIN [Concomitant]
     Active Substance: LUTEIN
     Dosage: UNK UNK, DAILY
  16. TRIAMCINOLONE ACETONIDE. [Concomitant]
     Active Substance: TRIAMCINOLONE ACETONIDE
     Dosage: UNK UNK, 3X/DAY (APPLY TO THE RED SKIN)
  17. CALCIUM CARBONATE. [Concomitant]
     Active Substance: CALCIUM CARBONATE
     Dosage: 1500 MG, 2X/DAY
     Route: 048

REACTIONS (2)
  - Stress [Unknown]
  - Drug dispensing error [Unknown]

NARRATIVE: CASE EVENT DATE: 20150105
